FAERS Safety Report 4896256-1 (Version None)
Quarter: 2006Q1

REPORT INFORMATION
  Report Type: 
  Country: None (occurrence: None)
  Receive Date: 20060126
  Receipt Date: 20060118
  Transmission Date: 20060701
  Serious: Yes (Hospitalization)
  Sender: FDA-Public Use
  Company Number: MK200601-0194-1

PATIENT
  Age: 66 Year
  Sex: Female

DRUGS (1)
  1. OPTIRAY 300 [Suspect]
     Indication: COMPUTERISED TOMOGRAM
     Dosage: 140 ML, ONE TIME, IV
     Route: 042
     Dates: start: 20060113, end: 20060113

REACTIONS (4)
  - BURNING SENSATION [None]
  - CARDIO-RESPIRATORY ARREST [None]
  - DYSPNOEA [None]
  - FEELING HOT [None]
